FAERS Safety Report 16051648 (Version 2)
Quarter: 2019Q1

REPORT INFORMATION
  Report Type: Report from Study
  Country: US (occurrence: US)
  Receive Date: 20190308
  Receipt Date: 20190313
  Transmission Date: 20190418
  Serious: Yes (Hospitalization, Other)
  Sender: FDA-Public Use
  Company Number: US-TESAROUBC-2019-TSO00718-US

PATIENT
  Age: 69 Year
  Sex: Female

DRUGS (1)
  1. ZEJULA [Suspect]
     Active Substance: NIRAPARIB
     Indication: OVARIAN CANCER
     Dosage: 200 MG, QD, PM
     Route: 048
     Dates: start: 20190116, end: 20190203

REACTIONS (10)
  - Dizziness [Unknown]
  - Platelet count decreased [Not Recovered/Not Resolved]
  - Failure to thrive [Unknown]
  - Haemoglobin decreased [Unknown]
  - Adverse event [Unknown]
  - Epistaxis [Unknown]
  - Abdominal discomfort [Unknown]
  - Nausea [Unknown]
  - Vomiting [Unknown]
  - White blood cell count decreased [Not Recovered/Not Resolved]

NARRATIVE: CASE EVENT DATE: 201901
